FAERS Safety Report 21160909 (Version 1)
Quarter: 2022Q3

REPORT INFORMATION
  Report Type: Report from Study
  Country: DE (occurrence: DE)
  Receive Date: 20220802
  Receipt Date: 20220802
  Transmission Date: 20221026
  Serious: Yes (Death, Hospitalization, Other)
  Sender: FDA-Public Use
  Company Number: DE-MYLANLABS-2022M1080416

PATIENT
  Sex: Female

DRUGS (13)
  1. UNSPECIFIED INGREDIENT [Suspect]
     Active Substance: UNSPECIFIED INGREDIENT
     Dosage: NO DOSE GIVEN
  2. METHOTREXATE SODIUM [Suspect]
     Active Substance: METHOTREXATE SODIUM
     Dosage: 15 MILLIGRAM
  3. METHOTREXATE SODIUM [Suspect]
     Active Substance: METHOTREXATE SODIUM
     Dosage: 10 MILLIGRAM
  4. METHOTREXATE SODIUM [Suspect]
     Active Substance: METHOTREXATE SODIUM
     Dosage: 10 MILLIGRAM
  5. METHOTREXATE SODIUM [Suspect]
     Active Substance: METHOTREXATE SODIUM
     Dosage: 15 MILLIGRAM
  6. MABTHERA [Suspect]
     Active Substance: RITUXIMAB
     Indication: Rheumatoid arthritis
     Dosage: 1000 MILLIGRAM
  7. MABTHERA [Suspect]
     Active Substance: RITUXIMAB
     Dosage: 1000 MILLIGRAM
  8. ETANERCEPT [Suspect]
     Active Substance: ETANERCEPT
     Indication: Rheumatoid arthritis
     Dosage: 50 MILLIGRAM
  9. ETANERCEPT [Suspect]
     Active Substance: ETANERCEPT
     Dosage: 50 MILLIGRAM
  10. TRUXIMA [Concomitant]
     Active Substance: RITUXIMAB-ABBS
     Indication: Rheumatoid arthritis
     Dosage: 1000 MILLIGRAM
  11. TRUXIMA [Concomitant]
     Active Substance: RITUXIMAB-ABBS
     Dosage: 1000 MILLIGRAM
  12. ORENCIA [Concomitant]
     Active Substance: ABATACEPT
     Indication: Rheumatoid arthritis
     Dosage: 125 MILLIGRAM
  13. ORENCIA [Concomitant]
     Active Substance: ABATACEPT
     Dosage: 125 MILLIGRAM

REACTIONS (3)
  - Death [Fatal]
  - Rheumatoid arthritis [Not Recovered/Not Resolved]
  - Thoracic vertebral fracture [Unknown]

NARRATIVE: CASE EVENT DATE: 20190319
